FAERS Safety Report 7974178-7 (Version None)
Quarter: 2011Q4

REPORT INFORMATION
  Report Type: 
  Country: None (occurrence: None)
  Receive Date: 20111213
  Receipt Date: 20110531
  Transmission Date: 20120403
  Serious: Yes (Hospitalization)
  Sender: FDA-Public Use
  Company Number: US-BAYER-2011-047209

PATIENT
  Sex: Female

DRUGS (5)
  1. IBUPROFEN [Concomitant]
     Dosage: UNK UNK, PRN
  2. INTERFERON BETA-1B [Suspect]
     Indication: RELAPSING-REMITTING MULTIPLE SCLEROSIS
     Dosage: 2 MIU, QOD
     Route: 058
     Dates: start: 20110527
  3. INTERFERON BETA-1B [Suspect]
     Dosage: UNK
     Dates: end: 20110701
  4. RANITIDINE [Concomitant]
  5. INTERFERON BETA-1B [Suspect]
     Dosage: 8 MIU, QOD
     Route: 058
     Dates: start: 20110702

REACTIONS (6)
  - HYPOAESTHESIA [None]
  - VISION BLURRED [None]
  - DISCOMFORT [None]
  - INFLUENZA LIKE ILLNESS [None]
  - INJECTION SITE PAIN [None]
  - MOBILITY DECREASED [None]
